FAERS Safety Report 7975843-8 (Version None)
Quarter: 2011Q4

REPORT INFORMATION
  Report Type: 
  Country: None (occurrence: None)
  Receive Date: 20111213
  Receipt Date: 20110923
  Transmission Date: 20120403
  Serious: No
  Sender: FDA-Public Use
  Company Number: US-AMGEN-USASP2011049308

PATIENT
  Age: 78 Year
  Sex: Female

DRUGS (2)
  1. ENBREL [Suspect]
     Indication: PSORIATIC ARTHROPATHY
     Dosage: 50 MG, QWK
     Dates: start: 20061201
  2. COUMADIN [Concomitant]
     Dosage: UNK
     Dates: start: 20100101

REACTIONS (2)
  - INJECTION SITE HAEMATOMA [None]
  - ANTICOAGULANT THERAPY [None]
